FAERS Safety Report 6141655-3 (Version None)
Quarter: 2009Q2

REPORT INFORMATION
  Report Type: 
  Country: None (occurrence: None)
  Receive Date: 20090402
  Receipt Date: 20090331
  Transmission Date: 20091009
  Serious: Yes (Other)
  Sender: FDA-Public Use
  Company Number: D0061107A

PATIENT

DRUGS (2)
  1. VIANI [Suspect]
     Route: 055
     Dates: start: 20090330, end: 20090330
  2. AVELOX [Concomitant]
     Route: 048
     Dates: start: 20090330

REACTIONS (2)
  - ANAPHYLACTIC SHOCK [None]
  - MALAISE [None]
